FAERS Safety Report 5258352-9 (Version None)
Quarter: 2007Q1

REPORT INFORMATION
  Report Type: 
  Country: None (occurrence: None)
  Receive Date: 20061117
  Receipt Date: 20060320
  Transmission Date: 20070707
  Serious: Yes (Hospitalization)
  Sender: FDA-Public Use
  Company Number: US-JNJFOC-20060305031

PATIENT
  Age: 63 Year
  Sex: Female
  Weight: 81.6475 kg

DRUGS (1)
  1. LEVAQUIN [Suspect]
     Indication: PROPHYLAXIS
     Dosage: 500 MG, 1 IN 1 DAY
     Dates: start: 20060213, end: 20060214

REACTIONS (7)
  - ASTHENIA [None]
  - BLOOD GLUCOSE ABNORMAL [None]
  - DIZZINESS [None]
  - FATIGUE [None]
  - PARAESTHESIA [None]
  - URINARY TRACT INFECTION [None]
  - VISION BLURRED [None]
